FAERS Safety Report 19072988 (Version 1)
Quarter: 2021Q1

REPORT INFORMATION
  Report Type: Spontaneous
  Country: US (occurrence: US)
  Receive Date: 20210330
  Receipt Date: 20210330
  Transmission Date: 20210420
  Serious: No
  Sender: FDA-Public Use
  Company Number: US-MYLANLABS-2021M1017267

PATIENT
  Sex: Male
  Weight: 66 kg

DRUGS (1)
  1. FENTANYL TRANSDERMAL SYSTEM [Suspect]
     Active Substance: FENTANYL
     Indication: FRACTURE PAIN
     Dosage: 50 MICROGRAM, QH (EVERY 72 HOURS).
     Route: 062

REACTIONS (3)
  - Product adhesion issue [Not Recovered/Not Resolved]
  - Withdrawal syndrome [Not Recovered/Not Resolved]
  - Wrong technique in product usage process [Unknown]
